FAERS Safety Report 8380093-X (Version None)
Quarter: 2012Q2

REPORT INFORMATION
  Report Type: 
  Country: None (occurrence: None)
  Receive Date: 20120523
  Receipt Date: 20120510
  Transmission Date: 20120825
  Serious: Yes (Hospitalization)
  Sender: FDA-Public Use
  Company Number: US-GLAXOSMITHKLINE-B0801837A

PATIENT
  Age: 54 Year
  Sex: Male
  Weight: 78 kg

DRUGS (2)
  1. DIGOXIN [Suspect]
     Indication: NO ADVERSE EVENT
     Dosage: .25MG IN THE MORNING
     Route: 048
     Dates: start: 20120215, end: 20120402
  2. RETIGABINE [Suspect]
     Indication: NO ADVERSE EVENT
     Route: 048
     Dates: start: 20120225, end: 20120408

REACTIONS (1)
  - DIVERTICULITIS [None]
